FAERS Safety Report 23278400 (Version 4)
Quarter: 2024Q2

REPORT INFORMATION
  Report Type: Spontaneous
  Country: US (occurrence: US)
  Receive Date: 20231208
  Receipt Date: 20240412
  Transmission Date: 20240716
  Serious: No
  Sender: FDA-Public Use
  Company Number: US-PFIZER INC-202300435330

PATIENT
  Age: 15 Year
  Sex: Female

DRUGS (2)
  1. TOFACITINIB [Suspect]
     Active Substance: TOFACITINIB
     Indication: Alopecia areata
     Dosage: TOFACINITIB 2% CREAM TO AFFECTED AREAS DAILY FOR ALOPECIA ON THE SCALP
     Route: 061
  2. TOFACITINIB [Suspect]
     Active Substance: TOFACITINIB
     Dosage: TOFACINITIB 1-2 TIMES A DAY
     Route: 061

REACTIONS (7)
  - Eczema [Unknown]
  - Dermatitis acneiform [Unknown]
  - Pustule [Unknown]
  - Acne [Unknown]
  - Acne cystic [Unknown]
  - Off label use [Unknown]
  - Drug ineffective for unapproved indication [Unknown]
